FAERS Safety Report 10023857 (Version 2)
Quarter: 2014Q1

REPORT INFORMATION
  Report Type: Spontaneous
  Country: US (occurrence: US)
  Receive Date: 20140320
  Receipt Date: 20140320
  Transmission Date: 20141002
  Serious: Yes (Disabling)
  Sender: FDA-Public Use
  Company Number: US-GE HEALTHCARE MEDICAL DIAGNOSTICS-OSCN-PR-0806S-0324

PATIENT
  Age: 42 Year
  Sex: Female

DRUGS (5)
  1. OMNISCAN [Suspect]
     Indication: ABDOMINAL PAIN
     Route: 042
     Dates: start: 20030807, end: 20030807
  2. OMNISCAN [Suspect]
     Indication: GASTROINTESTINAL HAEMORRHAGE
     Route: 042
     Dates: start: 20031018, end: 20031018
  3. OMNISCAN [Suspect]
     Indication: CEREBROVASCULAR ACCIDENT
     Route: 042
     Dates: start: 20031029, end: 20031029
  4. OMNISCAN [Suspect]
     Indication: BLINDNESS
     Route: 042
     Dates: start: 20031211, end: 20031211
  5. OMNISCAN [Suspect]
     Indication: PAIN IN EXTREMITY
     Route: 042
     Dates: start: 20040206, end: 20040206

REACTIONS (1)
  - Nephrogenic systemic fibrosis [Not Recovered/Not Resolved]
